FAERS Safety Report 6536606-3 (Version None)
Quarter: 2010Q1

REPORT INFORMATION
  Report Type: 
  Country: None (occurrence: None)
  Receive Date: 20100113
  Receipt Date: 20100104
  Transmission Date: 20100710
  Serious: Yes (Other)
  Sender: FDA-Public Use
  Company Number: ES-PFIZER INC-2010003266

PATIENT
  Age: 46 Year
  Sex: Male

DRUGS (1)
  1. ATARAX [Suspect]
     Indication: URTICARIA
     Dosage: 10 MG, 1X/DAY
     Route: 048
     Dates: start: 20080812, end: 20080926

REACTIONS (2)
  - BLOOD CREATINE PHOSPHOKINASE ABNORMAL [None]
  - TRANSAMINASES ABNORMAL [None]
